FAERS Safety Report 6065816-7 (Version None)
Quarter: 2009Q1

REPORT INFORMATION
  Report Type: 
  Country: None (occurrence: None)
  Receive Date: 20090205
  Receipt Date: 20090121
  Transmission Date: 20090719
  Serious: Yes (Death)
  Sender: FDA-Public Use
  Company Number: US-JNJFOC-20090105798

PATIENT
  Sex: Female
  Weight: 44.91 kg

DRUGS (4)
  1. DURAGESIC-100 [Suspect]
     Indication: DRUG USE FOR UNKNOWN INDICATION
     Route: 062
  2. PROPOXYPHENE [Concomitant]
  3. DESYREL [Concomitant]
  4. TYLENOL [Concomitant]

REACTIONS (2)
  - DRUG LEVEL INCREASED [None]
  - EMPHYSEMA [None]
